FAERS Safety Report 20145145 (Version 2)
Quarter: 2022Q1

REPORT INFORMATION
  Report Type: Spontaneous
  Country: US (occurrence: US)
  Receive Date: 20211203
  Receipt Date: 20220209
  Transmission Date: 20220423
  Serious: Yes (Hospitalization, Other)
  Sender: FDA-Public Use
  Company Number: US-PFIZER INC-2016329273

PATIENT
  Age: 67 Year
  Sex: Male
  Weight: 74.83 kg

DRUGS (28)
  1. LYRICA [Suspect]
     Active Substance: PREGABALIN
     Indication: Pain
     Dosage: 150 MG, 2X/DAY
     Route: 048
     Dates: start: 20160617
  2. LYRICA [Suspect]
     Active Substance: PREGABALIN
     Indication: Neuralgia
     Dosage: 150 MG, 2X/DAY
     Route: 048
     Dates: start: 20161216
  3. LYRICA [Suspect]
     Active Substance: PREGABALIN
     Indication: Neuropathy peripheral
     Dosage: 150 MG, 3X/DAY
     Route: 048
  4. LIORESAL [Concomitant]
     Active Substance: BACLOFEN
     Dosage: 10 MG, AS NEEDED (TAKE 1 TABLET BY MOUTH 3 TIMES A DAY)
     Route: 048
     Dates: start: 20160422
  5. LIORESAL [Concomitant]
     Active Substance: BACLOFEN
     Dosage: 10 MG, AS NEEDED (TAKE 1 TABLET BY MOUTH 3 TIMES A DAY)
     Route: 048
     Dates: start: 20161110
  6. ZYRTEC [Concomitant]
     Active Substance: CETIRIZINE HYDROCHLORIDE
     Dosage: 10 MG, DAILY
     Route: 048
  7. VITAMIN D3 [Concomitant]
     Active Substance: CHOLECALCIFEROL
     Dosage: 2000 IU, 2X/DAY
  8. VITAMIN D3 [Concomitant]
     Active Substance: CHOLECALCIFEROL
     Dosage: 2000 IU, 1X/DAY
  9. DURAGESIC [Concomitant]
     Active Substance: FENTANYL
     Indication: Pain
     Dosage: UNK (75 MCG/HR EVERY 48 HOURS FOR PAIN)
     Route: 062
     Dates: start: 20160614
  10. DURAGESIC [Concomitant]
     Active Substance: FENTANYL
     Dosage: UNK (75 MCG/HR EVERY 48 HOURS FOR PAIN)
     Route: 062
     Dates: start: 20161209
  11. NORCO [Concomitant]
     Active Substance: ACETAMINOPHEN\HYDROCODONE BITARTRATE
     Indication: Pain
     Dosage: 1 DF, AS NEEDED ( HYDROCODONE 5MG; ACETAMINOPHEN: 325 MG) TAKE 1 TABLET BY MOUTH EVERY 6 HOURS)
     Route: 048
     Dates: start: 20160401
  12. NORCO [Concomitant]
     Active Substance: ACETAMINOPHEN\HYDROCODONE BITARTRATE
     Dosage: 1 DF, AS NEEDED ( HYDROCODONE 5MG; ACETAMINOPHEN: 325 MG) TAKE 1 TABLET BY MOUTH EVERY 6 HOURS)
     Route: 048
     Dates: start: 20161114
  13. ATIVAN [Concomitant]
     Active Substance: LORAZEPAM
     Indication: Anxiety
     Dosage: 0.5 MG, AS NEEDED (TAKE 1 TABLET BY MOUTH 3 TIMES A DAY)
     Route: 048
     Dates: start: 20160413
  14. ATIVAN [Concomitant]
     Active Substance: LORAZEPAM
     Dosage: 0.5 DF, AS NEEDED, (ONE HALF TABLET PER DAY AS NEEDED FOR ANXIETY)
     Route: 048
     Dates: start: 20161209
  15. METHYLCELLULOSES [Concomitant]
     Active Substance: METHYLCELLULOSES
     Dosage: 1 DF, 1X/DAY
     Route: 048
  16. CYTOTEC [Concomitant]
     Active Substance: MISOPROSTOL
     Indication: Prophylaxis
     Dosage: 200 UG, 2X/DAY
     Route: 048
     Dates: start: 20160509
  17. NAPROSYN [Concomitant]
     Active Substance: NAPROXEN
     Dosage: 375 MG, 2X/DAY
     Route: 048
     Dates: start: 20160509
  18. PRILOSEC [Concomitant]
     Active Substance: OMEPRAZOLE MAGNESIUM
     Dosage: 20 MG, 2X/DAY
     Route: 048
     Dates: start: 20160509
  19. POTASSIUM GLUCONATE [Concomitant]
     Active Substance: POTASSIUM GLUCONATE
     Dosage: 99 MG, DAILY (595 (99) MG; TAKE 1 TABLET BY MOUTH DAILY)
     Route: 048
  20. DESYREL [Concomitant]
     Active Substance: TRAZODONE HYDROCHLORIDE
     Dosage: 50 MG, 1X/DAY (AT BEDTIME)
     Route: 048
     Dates: start: 20160509
  21. EFFEXOR XR [Concomitant]
     Active Substance: VENLAFAXINE HYDROCHLORIDE
     Indication: Depression
     Dosage: 150 MG, 1X/DAY (1 TABLET BY MOUTH IN THE AM)
     Route: 048
     Dates: start: 20160509
  22. EFFEXOR XR [Concomitant]
     Active Substance: VENLAFAXINE HYDROCHLORIDE
     Dosage: 150 MG, 1X/DAY
     Route: 048
     Dates: start: 20161101
  23. CLEOCIN [Concomitant]
     Active Substance: CLINDAMYCIN PHOSPHATE
     Dosage: 300 MG (TAKE 300 MG BY MOUTH EVERY 8 HOURS )
     Route: 048
     Dates: start: 20161206
  24. ELIQUIS [Concomitant]
     Active Substance: APIXABAN
     Dosage: 5 MG, 2X/DAY
     Route: 048
     Dates: start: 20161206
  25. FERROUS SULFATE [Concomitant]
     Active Substance: FERROUS SULFATE
     Dosage: 325 MG, 3X/DAY
     Route: 048
     Dates: start: 20161214
  26. VENLAFAXINE [Concomitant]
     Active Substance: VENLAFAXINE HYDROCHLORIDE
     Dosage: UNK
  27. TRAZODONE [Concomitant]
     Active Substance: TRAZODONE HYDROCHLORIDE
     Dosage: UNK
  28. ROBAXIN [Concomitant]
     Active Substance: METHOCARBAMOL
     Indication: Pain
     Dosage: UNK

REACTIONS (3)
  - Staphylococcal infection [Recovered/Resolved]
  - Cellulitis [Recovered/Resolved]
  - Lethargy [Recovered/Resolved]
